FAERS Safety Report 15110380 (Version 2)
Quarter: 2018Q3

REPORT INFORMATION
  Report Type: Report from Study
  Country: IT (occurrence: IT)
  Receive Date: 20180705
  Receipt Date: 20180817
  Transmission Date: 20181010
  Serious: Yes (Other)
  Sender: FDA-Public Use
  Company Number: IT-TEVA-2018-IT-921074

PATIENT
  Age: 85 Year
  Sex: Male

DRUGS (6)
  1. THIOCOLCHICOSIDE [Suspect]
     Active Substance: THIOCOLCHICOSIDE
     Indication: BACK PAIN
     Route: 030
     Dates: start: 20170501, end: 20170501
  2. ALDACTONE 25 MG CAPSULE RIGIDE [Concomitant]
     Route: 065
  3. AMIODARONE HYDROCHLORIDE. [Concomitant]
     Active Substance: AMIODARONE HYDROCHLORIDE
     Route: 065
  4. RABEPRAZOLE SODIUM. [Concomitant]
     Active Substance: RABEPRAZOLE SODIUM
     Route: 065
  5. KOLIBRI 37,5 MG / 325 MG, COMPRESSE RIVESTITE CON FILM [Concomitant]
     Route: 065
  6. DICLOFENAC [Suspect]
     Active Substance: DICLOFENAC
     Indication: BACK PAIN
     Route: 030
     Dates: start: 20170501, end: 20170501

REACTIONS (3)
  - Rash pruritic [Recovering/Resolving]
  - Oedema [Recovering/Resolving]
  - Oedema peripheral [Recovering/Resolving]

NARRATIVE: CASE EVENT DATE: 20170501
